FAERS Safety Report 5916526-5 (Version None)
Quarter: 2008Q4

REPORT INFORMATION
  Report Type: 
  Country: None (occurrence: None)
  Receive Date: 20081013
  Receipt Date: 20081008
  Transmission Date: 20090506
  Serious: Yes (Congenital Anomaly)
  Sender: FDA-Public Use
  Company Number: A0751638A

PATIENT
  Sex: Male
  Weight: 3.8 kg

DRUGS (1)
  1. SUMATRIPTAN SUCCINATE [Suspect]
     Indication: MIGRAINE

REACTIONS (2)
  - DRUG EXPOSURE DURING PREGNANCY [None]
  - TESTICULAR TORSION [None]
